FAERS Safety Report 14494746 (Version 2)
Quarter: 2018Q1

REPORT INFORMATION
  Report Type: Report from Study
  Country: US (occurrence: US)
  Receive Date: 20180206
  Receipt Date: 20180223
  Transmission Date: 20180509
  Serious: No
  Sender: FDA-Public Use
  Company Number: US-ALEXION PHARMACEUTICALS INC.-A201801177

PATIENT
  Sex: Female

DRUGS (1)
  1. STRENSIQ [Suspect]
     Active Substance: ASFOTASE ALFA
     Indication: PRODUCT USED FOR UNKNOWN INDICATION
     Dosage: UNK, UNK
     Route: 058

REACTIONS (6)
  - Injection site inflammation [Unknown]
  - Injection site reaction [Unknown]
  - Injection site pain [Unknown]
  - Injection site mass [Unknown]
  - Urinary tract infection [Unknown]
  - Injection site erythema [Unknown]

NARRATIVE: CASE EVENT DATE: 20180215
